FAERS Safety Report 5843679-X (Version None)
Quarter: 2008Q3

REPORT INFORMATION
  Report Type: 
  Country: None (occurrence: None)
  Receive Date: 20080812
  Receipt Date: 20080812
  Transmission Date: 20090109
  Serious: No
  Sender: FDA-Public Use
  Company Number: None

PATIENT
  Sex: Female
  Weight: 53.5244 kg

DRUGS (1)
  1. BUDEPRION 150MG [Suspect]
     Indication: BIPOLAR DISORDER
     Dosage: 450 MG 1 TIME/DAY -AM- PO
     Route: 048
     Dates: start: 20080601, end: 20080608

REACTIONS (1)
  - MOOD ALTERED [None]
